FAERS Safety Report 25026907 (Version 3)
Quarter: 2025Q3

REPORT INFORMATION
  Report Type: Spontaneous
  Country: US (occurrence: US)
  Receive Date: 20250301
  Receipt Date: 20250822
  Transmission Date: 20251020
  Serious: No
  Sender: SANOFI AVENTIS
  Company Number: US-SA-2025SA055192

PATIENT
  Age: 60 Year
  Sex: Female

DRUGS (1)
  1. DUPIXENT [Suspect]
     Active Substance: DUPILUMAB
     Indication: Chronic obstructive pulmonary disease
     Dosage: 300 MG, QOW
     Route: 058
     Dates: start: 202412

REACTIONS (4)
  - Respiratory tract infection [Unknown]
  - Dyspnoea [Recovering/Resolving]
  - Intentional dose omission [Unknown]
  - Drug ineffective [Unknown]
